FAERS Safety Report 7282500-2 (Version None)
Quarter: 2011Q1

REPORT INFORMATION
  Report Type: 
  Country: None (occurrence: None)
  Receive Date: 20110209
  Receipt Date: 20110202
  Transmission Date: 20110831
  Serious: Yes (Death, Hospitalization, Other)
  Sender: FDA-Public Use
  Company Number: US-CELGENEUS-163-21880-11020288

PATIENT
  Sex: Female

DRUGS (9)
  1. ONDANSETRON [Concomitant]
     Route: 065
  2. DOCUSATE SODIUM [Concomitant]
     Route: 065
  3. KETOROLAC [Concomitant]
     Route: 065
  4. SENNA [Concomitant]
     Route: 065
  5. POTASSIUM CHLORIDE [Concomitant]
     Route: 065
  6. REVLIMID [Suspect]
     Indication: MULTIPLE MYELOMA
     Route: 048
     Dates: start: 20091111, end: 20100119
  7. DEXAMETHASONE [Suspect]
     Indication: MULTIPLE MYELOMA
     Route: 065
     Dates: start: 20091111
  8. AREDIA [Suspect]
     Indication: MULTIPLE MYELOMA
     Route: 065
     Dates: start: 20091111
  9. EMEND [Concomitant]
     Route: 065

REACTIONS (17)
  - ELECTROLYTE IMBALANCE [None]
  - PNEUMONIA [None]
  - NAUSEA [None]
  - PLATELET COUNT DECREASED [None]
  - ASTHENIA [None]
  - HAEMOGLOBIN DECREASED [None]
  - COUGH [None]
  - MENTAL STATUS CHANGES [None]
  - PYREXIA [None]
  - VOMITING [None]
  - INFLUENZA [None]
  - RENAL FAILURE ACUTE [None]
  - THROMBOCYTOPENIA [None]
  - FATIGUE [None]
  - DEATH [None]
  - DEHYDRATION [None]
  - ANAEMIA [None]
